FAERS Safety Report 12322093 (Version 2)
Quarter: 2016Q2

REPORT INFORMATION
  Report Type: Report from Study
  Country: US (occurrence: US)
  Receive Date: 20160502
  Receipt Date: 20160517
  Transmission Date: 20160815
  Serious: Yes (Hospitalization, Other)
  Sender: FDA-Public Use
  Company Number: US-BAYER-2016-058909

PATIENT
  Age: 58 Year
  Sex: Female
  Weight: 78.91 kg

DRUGS (6)
  1. SELEXIPAG [Concomitant]
     Active Substance: SELEXIPAG
  2. ADEMPAS [Suspect]
     Active Substance: RIOCIGUAT
     Indication: PULMONARY ARTERIAL HYPERTENSION
     Dosage: 2.5 MG, TID
     Route: 048
  3. SELEXIPAG [Concomitant]
     Active Substance: SELEXIPAG
     Dosage: UNK
  4. ADEMPAS [Suspect]
     Active Substance: RIOCIGUAT
     Indication: PULMONARY ARTERIAL HYPERTENSION
     Dosage: UNK
     Dates: start: 20151203
  5. OPSUMIT [Concomitant]
     Active Substance: MACITENTAN
     Dosage: UNK
  6. ADEMPAS [Suspect]
     Active Substance: RIOCIGUAT
     Indication: PULMONARY ARTERIAL HYPERTENSION
     Dosage: 2.5 MG, TID
     Route: 048

REACTIONS (14)
  - Fungal infection [None]
  - Arthralgia [Unknown]
  - Dyspnoea [None]
  - Headache [Unknown]
  - Vomiting [Unknown]
  - Anxiety [Unknown]
  - Cough [None]
  - Musculoskeletal pain [None]
  - Pain in jaw [Unknown]
  - Tendon pain [Unknown]
  - Upper respiratory tract infection [Unknown]
  - Back pain [Unknown]
  - Myalgia [Unknown]
  - Pain in extremity [Unknown]
